FAERS Safety Report 18263035 (Version 1)
Quarter: 2020Q3

REPORT INFORMATION
  Report Type: Spontaneous
  Country: US (occurrence: US)
  Receive Date: 20200914
  Receipt Date: 20200914
  Transmission Date: 20201103
  Serious: Yes (Other)
  Sender: FDA-Public Use
  Company Number: None

PATIENT
  Age: 71 Year
  Sex: Male
  Weight: 90 kg

DRUGS (12)
  1. MULTI [Concomitant]
  2. CALCIUM [Concomitant]
     Active Substance: CALCIUM
  3. L?GLUTAMINE [Concomitant]
  4. REVLIMID [Suspect]
     Active Substance: LENALIDOMIDE
     Indication: TARGETED CANCER THERAPY
     Dosage: ?          QUANTITY:1 CAPSULE(S);OTHER FREQUENCY:WEEKLY;?
     Route: 048
     Dates: start: 20170501, end: 20170701
  5. VALYCYCLAVOR [Concomitant]
  6. VIT B [Concomitant]
     Active Substance: VITAMIN B
  7. CYTOXIN [Concomitant]
     Active Substance: CYCLOPHOSPHAMIDE
  8. DEXAMETHAZONE [Concomitant]
     Active Substance: DEXAMETHASONE
  9. AMOXICILLIN. [Concomitant]
     Active Substance: AMOXICILLIN
  10. VELCADE [Concomitant]
     Active Substance: BORTEZOMIB
  11. VIT D [Concomitant]
     Active Substance: VITAMIN D NOS
  12. GLUCOSAMINE CONDROITIN [Concomitant]

REACTIONS (2)
  - Atrial fibrillation [None]
  - Fatigue [None]

NARRATIVE: CASE EVENT DATE: 20170515
